FAERS Safety Report 8321359-9 (Version None)
Quarter: 2012Q2

REPORT INFORMATION
  Report Type: 
  Country: None (occurrence: None)
  Receive Date: 20120430
  Receipt Date: 20090922
  Transmission Date: 20120825
  Serious: No
  Sender: FDA-Public Use
  Company Number: US-TEVA-2009010565

PATIENT
  Sex: Female
  Weight: 47.67 kg

DRUGS (2)
  1. NUVIGIL [Suspect]
     Indication: HYPERSOMNIA
     Route: 048
     Dates: end: 20090901
  2. NUVIGIL [Suspect]
     Route: 048
     Dates: start: 20090901, end: 20090901

REACTIONS (1)
  - LOGORRHOEA [None]
